FAERS Safety Report 8142548-2 (Version None)
Quarter: 2012Q1

REPORT INFORMATION
  Report Type: 
  Country: None (occurrence: None)
  Receive Date: 20120216
  Receipt Date: 20120202
  Transmission Date: 20120608
  Serious: Yes (Other)
  Sender: FDA-Public Use
  Company Number: BR-WATSON-2012-02092

PATIENT
  Age: 51 Year
  Sex: Female

DRUGS (3)
  1. CARBAMAZEPINE [Suspect]
     Indication: MULTIPLE SCLEROSIS
     Dosage: UNK
  2. DIAZEPAM [Suspect]
     Indication: MULTIPLE SCLEROSIS
     Dosage: UNK
  3. CHLORPROMAZINE HCL [Suspect]
     Indication: MULTIPLE SCLEROSIS

REACTIONS (1)
  - NEUROLEPTIC MALIGNANT SYNDROME [None]
